FAERS Safety Report 23623113 (Version 1)
Quarter: 2024Q1

REPORT INFORMATION
  Report Type: Spontaneous
  Country: US (occurrence: US)
  Receive Date: 20240312
  Receipt Date: 20240312
  Transmission Date: 20240409
  Serious: Yes (Other)
  Sender: FDA-Public Use
  Company Number: US-STERISCIENCE B.V.-2024-ST-000235

PATIENT
  Age: 70 Year
  Sex: Female

DRUGS (13)
  1. MIDAZOLAM [Suspect]
     Active Substance: MIDAZOLAM
     Indication: Generalised tonic-clonic seizure
     Dosage: UNK
     Route: 065
  2. MIDAZOLAM [Suspect]
     Active Substance: MIDAZOLAM
     Dosage: INCREASING DOSES
     Route: 065
  3. LEVETIRACETAM [Suspect]
     Active Substance: LEVETIRACETAM
     Indication: Generalised tonic-clonic seizure
     Dosage: UNK
     Route: 042
  4. LEVETIRACETAM [Suspect]
     Active Substance: LEVETIRACETAM
     Dosage: INCREASING DOSES
     Route: 042
  5. LACOSAMIDE [Suspect]
     Active Substance: LACOSAMIDE
     Indication: Generalised tonic-clonic seizure
     Dosage: UNK
     Route: 042
  6. LACOSAMIDE [Suspect]
     Active Substance: LACOSAMIDE
     Dosage: INCREASING DOSES
     Route: 042
  7. PROPOFOL [Suspect]
     Active Substance: PROPOFOL
     Indication: Generalised tonic-clonic seizure
     Dosage: UNK
     Route: 065
  8. PROPOFOL [Suspect]
     Active Substance: PROPOFOL
     Dosage: INCREASING DOSES
     Route: 065
  9. PHENYTOIN [Suspect]
     Active Substance: PHENYTOIN
     Indication: Generalised tonic-clonic seizure
     Dosage: UNK
     Route: 065
  10. PHENYTOIN [Suspect]
     Active Substance: PHENYTOIN
     Dosage: INCREASING DOSES
     Route: 065
  11. EPINEPHRINE [Concomitant]
     Active Substance: EPINEPHRINE
     Indication: Decompensated hypothyroidism
     Dosage: UNK
     Route: 065
  12. ATROPINE [Concomitant]
     Active Substance: ATROPINE\ATROPINE SULFATE
     Indication: Decompensated hypothyroidism
     Dosage: UNK
     Route: 065
  13. LEVOTHYROXINE SODIUM [Concomitant]
     Active Substance: LEVOTHYROXINE SODIUM
     Indication: Decompensated hypothyroidism
     Dosage: UNK
     Route: 065

REACTIONS (2)
  - Condition aggravated [Unknown]
  - Drug ineffective for unapproved indication [Unknown]
